FAERS Safety Report 13833271 (Version 4)
Quarter: 2018Q2

REPORT INFORMATION
  Report Type: Spontaneous
  Country: US (occurrence: US)
  Receive Date: 20170804
  Receipt Date: 20180418
  Transmission Date: 20180711
  Serious: No
  Sender: FDA-Public Use
  Company Number: US-PFIZER INC-2017334937

PATIENT
  Age: 78 Year
  Sex: Female

DRUGS (1)
  1. XELJANZ [Suspect]
     Active Substance: TOFACITINIB CITRATE
     Dosage: 5 MG, UNK
     Dates: start: 201708

REACTIONS (4)
  - Onychomadesis [Unknown]
  - Diarrhoea [Unknown]
  - Abdominal pain [Unknown]
  - Onychomycosis [Unknown]

NARRATIVE: CASE EVENT DATE: 2017
